FAERS Safety Report 9006668 (Version 1)
Quarter: 2013Q1

REPORT INFORMATION
  Report Type: Spontaneous
  Country: US (occurrence: US)
  Receive Date: 20130110
  Receipt Date: 20130110
  Transmission Date: 20140127
  Serious: Yes (Life-Threatening, Hospitalization, Other)
  Sender: FDA-Public Use
  Company Number: US-009507513-1301XAA003133

PATIENT
  Age: 82 Year
  Sex: Female

DRUGS (6)
  1. MONTELUKAST SODIUM [Suspect]
     Indication: ASTHMA
     Route: 048
  2. PULMICORT [Suspect]
     Indication: ASTHMA
     Dosage: 10 MG, UNK
     Route: 048
  3. INTAL [Suspect]
     Indication: CHOLELITHIASIS
     Route: 048
  4. ASPIRIN [Suspect]
     Indication: HYPERTENSION
     Dosage: 10 MG, UNK
     Route: 048
  5. LORATADINE [Suspect]
     Indication: RHINITIS ALLERGIC
  6. UNIPHYL [Suspect]
     Dosage: 200 DF, UNK
     Route: 048

REACTIONS (3)
  - Cerebral infarction [Unknown]
  - Adverse event [Unknown]
  - Hypertension [Unknown]
